FAERS Safety Report 21112716 (Version 1)
Quarter: 2022Q3

REPORT INFORMATION
  Report Type: Spontaneous
  Country: US (occurrence: US)
  Receive Date: 20220721
  Receipt Date: 20220721
  Transmission Date: 20221027
  Serious: No
  Sender: FDA-Public Use
  Company Number: US-BAYER-2022A098833

PATIENT
  Age: 34 Year
  Sex: Female

DRUGS (1)
  1. KYLEENA [Suspect]
     Active Substance: LEVONORGESTREL
     Dosage: 17.5?G/DAY
     Route: 015
     Dates: start: 202203

REACTIONS (5)
  - Muscle spasms [Unknown]
  - Stress [Unknown]
  - Abdominal pain lower [Unknown]
  - Decreased appetite [Unknown]
  - Device issue [Unknown]
